FAERS Safety Report 17666500 (Version 1)
Quarter: 2020Q2

REPORT INFORMATION
  Report Type: Spontaneous
  Country: US (occurrence: US)
  Receive Date: 20200414
  Receipt Date: 20200414
  Transmission Date: 20200713
  Serious: Yes (Hospitalization)
  Sender: FDA-Public Use
  Company Number: US-CORCEPT THERAPEUTICS INC.-US-2019CRT000374

PATIENT
  Age: 53 Year
  Sex: Female
  Weight: 128.8 kg

DRUGS (3)
  1. KORLYM [Suspect]
     Active Substance: MIFEPRISTONE
     Dosage: 1200 MG, QD
     Route: 048
     Dates: start: 2019
  2. KORLYM [Suspect]
     Active Substance: MIFEPRISTONE
     Indication: CUSHING^S SYNDROME
     Dosage: UNK, QD
     Route: 048
     Dates: start: 201606, end: 2018
  3. KORLYM [Suspect]
     Active Substance: MIFEPRISTONE
     Dosage: 1200 MG, QD
     Route: 048
     Dates: start: 20180315, end: 20190312

REACTIONS (2)
  - Blood potassium decreased [Recovered/Resolved]
  - Nausea [Unknown]

NARRATIVE: CASE EVENT DATE: 2019
